FAERS Safety Report 5303381-X (Version None)
Quarter: 2007Q2

REPORT INFORMATION
  Report Type: 
  Country: None (occurrence: None)
  Receive Date: 20070420
  Receipt Date: 20070411
  Transmission Date: 20071010
  Serious: Yes (Other)
  Sender: FDA-Public Use
  Company Number: US-JNJFOC-20070403160

PATIENT
  Age: 61 Year
  Sex: Male

DRUGS (4)
  1. GALANTAMINE HYDROBROMIDE [Suspect]
     Dosage: 2 WEEKS OF THERAPY
  2. GALANTAMINE HYDROBROMIDE [Suspect]
     Indication: COGNITIVE DISORDER
     Dosage: 8 DAYS OF THERAPY
  3. DONEPEZIL HCL [Suspect]
  4. DONEPEZIL HCL [Suspect]
     Indication: COGNITIVE DISORDER

REACTIONS (2)
  - POST-TRAUMATIC STRESS DISORDER [None]
  - SEDATION [None]
